FAERS Safety Report 7623128-1 (Version None)
Quarter: 2011Q3

REPORT INFORMATION
  Report Type: 
  Country: None (occurrence: None)
  Receive Date: 20110720
  Receipt Date: 20110706
  Transmission Date: 20111222
  Serious: Yes (Other)
  Sender: FDA-Public Use
  Company Number: PHHY2011FR61247

PATIENT
  Age: 22 Year
  Sex: Male

DRUGS (2)
  1. CLOZAPINE [Suspect]
     Dosage: 250 MG, DAILY
  2. CLOZAPINE [Suspect]
     Indication: MENTAL DISORDER
     Dosage: 700 MG, DAILY

REACTIONS (4)
  - INSOMNIA [None]
  - VOMITING [None]
  - WITHDRAWAL SYNDROME [None]
  - HYPERHIDROSIS [None]
